FAERS Safety Report 15234032 (Version 1)
Quarter: 2018Q3

REPORT INFORMATION
  Report Type: Spontaneous
  Country: US (occurrence: US)
  Receive Date: 20180802
  Receipt Date: 20180802
  Transmission Date: 20181010
  Serious: No
  Sender: FDA-Public Use
  Company Number: US-ECOLAB-2017-US-010086

PATIENT
  Age: 84 Year
  Sex: Female

DRUGS (17)
  1. OMEPRAZOLE. [Concomitant]
     Active Substance: OMEPRAZOLE
  2. WARFARIN [Concomitant]
     Active Substance: WARFARIN
  3. LISINOPRIL. [Concomitant]
     Active Substance: LISINOPRIL
  4. NITROGLYCERIN. [Concomitant]
     Active Substance: NITROGLYCERIN
  5. SODIUM BICARBONATE. [Concomitant]
     Active Substance: SODIUM BICARBONATE
  6. PREDNISONE. [Concomitant]
     Active Substance: PREDNISONE
  7. LATANOPROST. [Concomitant]
     Active Substance: LATANOPROST
  8. AMLODIPINE [Concomitant]
     Active Substance: AMLODIPINE BESYLATE
  9. SCRUB?STAT [Suspect]
     Active Substance: CHLORHEXIDINE GLUCONATE
     Indication: ACCIDENTAL EXPOSURE TO PRODUCT
     Dosage: 1 OZ
     Route: 048
     Dates: start: 20170824, end: 20170824
  10. SIMBRINZA [Concomitant]
     Active Substance: BRIMONIDINE TARTRATE\BRINZOLAMIDE
  11. POLYETHYLENE GLYCOL [Concomitant]
     Active Substance: POLYETHYLENE GLYCOLS
  12. VITAMIN D [Concomitant]
     Active Substance: CHOLECALCIFEROL
  13. BUMETANIDE. [Concomitant]
     Active Substance: BUMETANIDE
  14. LEVOTHYROXINE. [Concomitant]
     Active Substance: LEVOTHYROXINE
  15. MELATONIN [Concomitant]
     Active Substance: MELATONIN
  16. PRAVASTATIN. [Concomitant]
     Active Substance: PRAVASTATIN
  17. METOPROLOL TITRATE [Concomitant]
     Active Substance: METOPROLOL TARTRATE

REACTIONS (3)
  - Eructation [Recovered/Resolved]
  - Abdominal pain [Recovered/Resolved]
  - Accidental exposure to product [Recovered/Resolved]

NARRATIVE: CASE EVENT DATE: 20170824
